FAERS Safety Report 5431312-0 (Version None)
Quarter: 2007Q3

REPORT INFORMATION
  Report Type: 
  Country: None (occurrence: None)
  Receive Date: 20070828
  Receipt Date: 20070814
  Transmission Date: 20080115
  Serious: Yes (Other)
  Sender: FDA-Public Use
  Company Number: SPV1-2007-03862

PATIENT
  Age: 15 Year
  Sex: Female

DRUGS (1)
  1. VYVANSE [Suspect]
     Dosage: 30 MG, 1X/DAY; QD, ORAL
     Route: 048

REACTIONS (1)
  - ANGINA PECTORIS [None]
